FAERS Safety Report 5542006-5 (Version None)
Quarter: 2007Q4

REPORT INFORMATION
  Report Type: 
  Country: None (occurrence: None)
  Receive Date: 20071205
  Receipt Date: 20070726
  Transmission Date: 20080405
  Serious: Yes (Hospitalization)
  Sender: FDA-Public Use
  Company Number: 001#2#2007-00503

PATIENT
  Age: 66 Year
  Sex: Female

DRUGS (4)
  1. NEURO-PATCH-DOSE UNKNOWN (ROTIGOTINE) [Suspect]
     Dosage: 10 MG/24H (10 MG/24H 1 IN 1 DAY (S)) TRANSDERMAL
     Route: 062
  2. CITALOPRAM HYDROBROMIDE [Suspect]
     Dosage: 60 MG ORAL
     Route: 048
  3. OXYBUTYNINE [Concomitant]
  4. ANTICHOLINERGICS [Concomitant]

REACTIONS (2)
  - LOSS OF CONSCIOUSNESS [None]
  - SEROTONIN SYNDROME [None]
